FAERS Safety Report 8513289 (Version 3)
Quarter: 2014Q1

REPORT INFORMATION
  Report Type: Spontaneous
  Country: US (occurrence: US)
  Receive Date: 20120416
  Receipt Date: 20140226
  Transmission Date: 20141002
  Serious: No
  Sender: FDA-Public Use
  Company Number: US-PFIZER INC-2012091255

PATIENT
  Age: 55 Year
  Sex: Male

DRUGS (7)
  1. CHANTIX [Suspect]
     Dosage: 1 MG, 1X/DAY
  2. VIAGRA [Concomitant]
     Indication: SEXUAL DYSFUNCTION
     Dosage: 100 MG, AS NEEDED
  3. LYRICA [Concomitant]
     Dosage: UNK
  4. AZILECT [Concomitant]
     Dosage: UNK
  5. KLONOPIN [Concomitant]
     Dosage: UNK
  6. ADDERALL [Concomitant]
     Dosage: UNK
  7. DESMOPRESSIN [Concomitant]
     Dosage: UNK

REACTIONS (5)
  - Nervous system disorder [Unknown]
  - Balance disorder [Unknown]
  - Gait disturbance [Unknown]
  - Therapeutic response unexpected [Unknown]
  - Limb injury [Unknown]
